FAERS Safety Report 8842428 (Version 3)
Quarter: 2013Q1

REPORT INFORMATION
  Report Type: Report from Study
  Country: US (occurrence: US)
  Receive Date: 20121016
  Receipt Date: 20130104
  Transmission Date: 20140127
  Serious: Yes (Hospitalization)
  Sender: FDA-Public Use
  Company Number: US-PFIZER INC-2012252077

PATIENT
  Age: 16 Year
  Sex: Male

DRUGS (5)
  1. DOXORUBICIN HCL [Suspect]
     Indication: ACUTE LYMPHOCYTIC LEUKAEMIA
     Dosage: UNK
  2. METHOTREXATE SODIUM [Suspect]
     Indication: ACUTE LYMPHOCYTIC LEUKAEMIA
  3. DASATINIB [Suspect]
     Indication: ACUTE LYMPHOCYTIC LEUKAEMIA
     Dosage: 100 MG, 1X/DAY
     Route: 048
     Dates: start: 20120426
  4. DEXAMETHASONE SODIUM PHOSPHATE [Concomitant]
     Indication: ACUTE LYMPHOCYTIC LEUKAEMIA
     Dosage: UNK
  5. VINCRISTINE SULFATE [Concomitant]
     Indication: ACUTE LYMPHOCYTIC LEUKAEMIA

REACTIONS (12)
  - Neutropenia [Unknown]
  - Pleural effusion [Unknown]
  - Sepsis [Unknown]
  - Klebsiella infection [Unknown]
  - Caecitis [Unknown]
  - Blood creatinine increased [Unknown]
  - Renal failure acute [Unknown]
  - Respiratory distress [Unknown]
  - Gastrointestinal necrosis [Unknown]
  - Intestinal perforation [Unknown]
  - Peritonitis [Unknown]
  - Haemodynamic instability [Unknown]
